FAERS Safety Report 14167373 (Version 1)
Quarter: 2017Q4

REPORT INFORMATION
  Report Type: Spontaneous
  Country: DE (occurrence: DE)
  Receive Date: 20171107
  Receipt Date: 20171107
  Transmission Date: 20180321
  Serious: Yes (Hospitalization, Disabling, Other)
  Sender: FDA-Public Use
  Company Number: PHHY2017DE091800

PATIENT
  Sex: Female
  Weight: 57 kg

DRUGS (3)
  1. TASIGNA [Suspect]
     Active Substance: NILOTINIB
     Indication: CHRONIC MYELOID LEUKAEMIA
     Dosage: 2 DF, QD
     Route: 048
     Dates: start: 2007, end: 201707
  2. L-THYROXIN [Concomitant]
     Active Substance: LEVOTHYROXINE SODIUM
     Indication: PRODUCT USED FOR UNKNOWN INDICATION
     Dosage: 100 UG, QD
     Route: 048
  3. SULPIRID [Concomitant]
     Active Substance: SULPIRIDE
     Indication: PRODUCT USED FOR UNKNOWN INDICATION
     Dosage: 50 MG, QD
     Route: 048
     Dates: start: 2017

REACTIONS (6)
  - Inflammation [Not Recovered/Not Resolved]
  - Herpes zoster [Recovered/Resolved]
  - Stenosis [Unknown]
  - General physical health deterioration [Unknown]
  - Fatigue [Unknown]
  - Vasculitis [Unknown]

NARRATIVE: CASE EVENT DATE: 20150423
